FAERS Safety Report 14298557 (Version 6)
Quarter: 2018Q2

REPORT INFORMATION
  Report Type: Spontaneous
  Country: US (occurrence: US)
  Receive Date: 20171218
  Receipt Date: 20180423
  Transmission Date: 20180711
  Serious: Yes (Death, Hospitalization)
  Sender: FDA-Public Use
  Company Number: US-ACTELION-A-NJ2017-164446

PATIENT
  Age: 67 Year
  Sex: Female
  Weight: 105.67 kg

DRUGS (2)
  1. OPSUMIT [Suspect]
     Active Substance: MACITENTAN
     Indication: PULMONARY HYPERTENSION
     Dosage: 10 MG, QD
     Route: 048
     Dates: start: 20170530, end: 20180320
  2. OXYGEN. [Concomitant]
     Active Substance: OXYGEN

REACTIONS (7)
  - Anaemia [Not Recovered/Not Resolved]
  - Productive cough [Not Recovered/Not Resolved]
  - Pulmonary arterial hypertension [Fatal]
  - Abdominal pain upper [Recovered/Resolved]
  - Thrombosis [Not Recovered/Not Resolved]
  - Constipation [Recovered/Resolved]
  - Ear discomfort [Not Recovered/Not Resolved]

NARRATIVE: CASE EVENT DATE: 201711
